FAERS Safety Report 4802334-5 (Version None)
Quarter: 2005Q4

REPORT INFORMATION
  Report Type: 
  Country: None (occurrence: None)
  Receive Date: 20051014
  Receipt Date: 20050426
  Transmission Date: 20060501
  Serious: Yes (Other)
  Sender: FDA-Public Use
  Company Number: 2005062935

PATIENT
  Age: 35 Year
  Sex: Female
  Weight: 55.3388 kg

DRUGS (3)
  1. NEURONTIN [Suspect]
     Indication: CONVULSION
     Dosage: (3 IN 1 D), ORAL
     Route: 048
     Dates: start: 20010101
  2. LAMOTRIGINE [Concomitant]
  3. ALL OTHER THERAPEUTIC PRODUCTS (ALL OTHER THERAPEUTIC PRODUCTS) [Concomitant]

REACTIONS (3)
  - AMNESIA [None]
  - CONVULSION [None]
  - HYPOTRICHOSIS [None]
